FAERS Safety Report 13626529 (Version 1)
Quarter: 2017Q2

REPORT INFORMATION
  Report Type: Spontaneous
  Country: US (occurrence: US)
  Receive Date: 20170531
  Receipt Date: 20170531
  Transmission Date: 20170830
  Serious: Yes (Hospitalization)
  Sender: FDA-Public Use
  Company Number: US-ASTELLAS-1406648

PATIENT
  Sex: Male

DRUGS (5)
  1. TARCEVA [Suspect]
     Active Substance: ERLOTINIB HYDROCHLORIDE
     Indication: LUNG NEOPLASM MALIGNANT
     Route: 048
     Dates: start: 20140508
  2. HOMATROPINE/HYDROCODONE [Concomitant]
  3. MUCINEX [Concomitant]
     Active Substance: GUAIFENESIN
  4. BENZONATATE. [Concomitant]
     Active Substance: BENZONATATE
  5. LOSARTAN POTASSIUM. [Concomitant]
     Active Substance: LOSARTAN POTASSIUM

REACTIONS (5)
  - Asthenia [Unknown]
  - Vomiting [Unknown]
  - Rash [Unknown]
  - Dehydration [Unknown]
  - Cough [Unknown]
